FAERS Safety Report 13780858 (Version 1)
Quarter: 2017Q3

REPORT INFORMATION
  Report Type: Spontaneous
  Country: US (occurrence: US)
  Receive Date: 20170721
  Receipt Date: 20170721
  Transmission Date: 20171127
  Serious: Yes (Disabling)
  Sender: FDA-Public Use
  Company Number: None

PATIENT
  Age: 42 Year
  Sex: Female
  Weight: 63 kg

DRUGS (6)
  1. WELLBUTRIN [Concomitant]
     Active Substance: BUPROPION HYDROCHLORIDE
  2. WOMEN^S ONCE-DAILY MULTI-VITAMIN [Concomitant]
  3. VENLAFAXINE HCL [Concomitant]
     Active Substance: VENLAFAXINE HYDROCHLORIDE
  4. CALCIUM CHEW SUPPLEMENTS [Concomitant]
  5. BIRTH CONTROL PILL [Concomitant]
     Active Substance: UNSPECIFIED INGREDIENT
  6. QUETIAPINE FUMARATE. [Suspect]
     Active Substance: QUETIAPINE FUMARATE
     Indication: SLEEP DISORDER
     Dosage: ?          OTHER STRENGTH:MG;QUANTITY:1 TABLET(S);?
     Route: 048
     Dates: start: 20170710, end: 20170717

REACTIONS (8)
  - Product substitution issue [None]
  - Fatigue [None]
  - Anxiety [None]
  - Insomnia [None]
  - Loss of personal independence in daily activities [None]
  - Affective disorder [None]
  - Feeling of despair [None]
  - Eating disorder [None]

NARRATIVE: CASE EVENT DATE: 20170713
